FAERS Safety Report 7429734-1 (Version None)
Quarter: 2011Q2

REPORT INFORMATION
  Report Type: 
  Country: None (occurrence: None)
  Receive Date: 20110421
  Receipt Date: 20110419
  Transmission Date: 20111010
  Serious: Yes (Disabling)
  Sender: FDA-Public Use
  Company Number: JP-PFIZER INC-2011034754

PATIENT
  Age: 11 Year
  Sex: Male
  Weight: 27.2 kg

DRUGS (1)
  1. GENOTROPIN TC [Suspect]
     Indication: BODY HEIGHT BELOW NORMAL
     Dosage: 0.9 MG, 1X/DAY
     Route: 058
     Dates: start: 20101113, end: 20110120

REACTIONS (3)
  - EYELIDS PRURITUS [None]
  - EYELID OEDEMA [None]
  - ERYTHEMA OF EYELID [None]
